FAERS Safety Report 4478485-4 (Version None)
Quarter: 2004Q4

REPORT INFORMATION
  Report Type: 
  Country: None (occurrence: None)
  Receive Date: 20041019
  Receipt Date: 20040730
  Transmission Date: 20050328
  Serious: Yes (Death, Other)
  Sender: FDA-Public Use
  Company Number: PHEH2004US08289

PATIENT
  Age: 46 Year
  Sex: Male

DRUGS (6)
  1. CLOZARIL [Suspect]
     Indication: SCHIZOPHRENIA
     Dosage: 500 MG, QD
     Route: 048
     Dates: start: 19950101
  2. DETROL [Suspect]
     Indication: INCONTINENCE
     Dosage: 4 MG, QD
     Route: 048
     Dates: start: 20030701
  3. SYNTHROID [Concomitant]
     Indication: HYPOTHYROIDISM
     Dosage: .075 MG, QD
     Route: 048
  4. TRICOR [Concomitant]
     Indication: HYPERTRIGLYCERIDAEMIA
     Dosage: 160 MG, QD
     Route: 048
     Dates: start: 20030101
  5. NIASPAN [Concomitant]
     Indication: HYPERTRIGLYCERIDAEMIA
     Dosage: 500 MG, BID
     Route: 048
     Dates: start: 20000801
  6. WELCHOL [Concomitant]
     Indication: HYPERTRIGLYCERIDAEMIA
     Dosage: 3 UNK, BID3SDO
     Route: 048
     Dates: start: 20010501

REACTIONS (6)
  - ARRHYTHMIA [None]
  - CARDIAC ARREST [None]
  - CIRCULATORY COLLAPSE [None]
  - CONVULSION [None]
  - DRUG LEVEL INCREASED [None]
  - VOMITING [None]
